FAERS Safety Report 5135332-5 (Version None)
Quarter: 2006Q4

REPORT INFORMATION
  Report Type: 
  Country: None (occurrence: None)
  Receive Date: 20061026
  Receipt Date: 20050926
  Transmission Date: 20070319
  Serious: No
  Sender: FDA-Public Use
  Company Number: US-GLAXOSMITHKLINE-A0575883A

PATIENT
  Age: 44 Year
  Sex: Female

DRUGS (3)
  1. IMITREX [Suspect]
     Indication: MIGRAINE
     Dosage: 1SPR AS REQUIRED
     Route: 045
     Dates: start: 20050718
  2. IMITREX [Suspect]
     Dosage: 50MG AS REQUIRED
     Route: 048
  3. MIDRIN [Concomitant]

REACTIONS (3)
  - DRUG INEFFECTIVE [None]
  - RETCHING [None]
  - VOMITING [None]
